FAERS Safety Report 11852422 (Version 3)
Quarter: 2018Q3

REPORT INFORMATION
  Report Type: Spontaneous
  Country: US (occurrence: US)
  Receive Date: 20151218
  Receipt Date: 20180806
  Transmission Date: 20181010
  Serious: Yes (Hospitalization)
  Sender: FDA-Public Use
  Company Number: US-PFIZER INC-2015455337

PATIENT
  Age: 34 Year
  Sex: Female
  Weight: 120 kg

DRUGS (2)
  1. LYRICA [Suspect]
     Active Substance: PREGABALIN
     Indication: FIBROMYALGIA
     Dosage: 300 MG, 2X/DAY
     Route: 048
  2. ZOFRAN [Concomitant]
     Active Substance: ONDANSETRON HYDROCHLORIDE
     Indication: NAUSEA
     Dosage: 1 DF, 3X/DAY
     Dates: start: 20151201, end: 20151213

REACTIONS (5)
  - Cholelithiasis [Recovering/Resolving]
  - Malaise [Not Recovered/Not Resolved]
  - Pain [Recovered/Resolved]
  - Insomnia [Recovered/Resolved]
  - Prescribed overdose [Unknown]

NARRATIVE: CASE EVENT DATE: 20151209
